FAERS Safety Report 7909603-0 (Version None)
Quarter: 2011Q4

REPORT INFORMATION
  Report Type: 
  Country: None (occurrence: None)
  Receive Date: 20111111
  Receipt Date: 20111103
  Transmission Date: 20120403
  Serious: Yes (Hospitalization)
  Sender: FDA-Public Use
  Company Number: SE-PERRIGO-11SE009660

PATIENT
  Age: 37 Year
  Sex: Female

DRUGS (2)
  1. BROMOCRIPTINE MESYLATE USP RX 2.5 MG 4U2 [Suspect]
     Indication: LACTATION INHIBITION THERAPY
     Dosage: 2.5MG, 2 DOSES
     Route: 065
  2. FLOXACILLIN SODIUM [Suspect]
     Indication: MASTITIS
     Dosage: UNK
     Route: 065

REACTIONS (2)
  - ACUTE CORONARY SYNDROME [None]
  - STRESS CARDIOMYOPATHY [None]
